FAERS Safety Report 6102914-3 (Version None)
Quarter: 2009Q1

REPORT INFORMATION
  Report Type: 
  Country: None (occurrence: None)
  Receive Date: 20090303
  Receipt Date: 20090303
  Transmission Date: 20090719
  Serious: No
  Sender: FDA-Public Use
  Company Number: None

PATIENT
  Age: 65 Year
  Sex: Female
  Weight: 76.2043 kg

DRUGS (2)
  1. PLAQUENIL [Suspect]
     Indication: RHEUMATOID ARTHRITIS
     Dosage: 1 TABLET DAILY
     Dates: start: 20090113, end: 20090212
  2. PLAQUENIL [Suspect]
     Indication: SYSTEMIC LUPUS ERYTHEMATOSUS
     Dosage: 1 TABLET DAILY
     Dates: start: 20090113, end: 20090212

REACTIONS (3)
  - DRUG HYPERSENSITIVITY [None]
  - INSOMNIA [None]
  - PITYRIASIS ROSEA [None]
